FAERS Safety Report 6287588-3 (Version None)
Quarter: 2009Q3

REPORT INFORMATION
  Report Type: 
  Country: None (occurrence: None)
  Receive Date: 20090727
  Receipt Date: 20090714
  Transmission Date: 20100115
  Serious: Yes (Hospitalization)
  Sender: FDA-Public Use
  Company Number: 8049055

PATIENT
  Age: 32 Year
  Sex: Male

DRUGS (1)
  1. KEPPRA [Suspect]
     Indication: EPILEPSY
     Dosage: 2000 MG /D PO
     Route: 048
     Dates: start: 20090301, end: 20090403

REACTIONS (5)
  - AGGRESSION [None]
  - AGITATION [None]
  - AMNESIA [None]
  - IMPULSIVE BEHAVIOUR [None]
  - PARANOIA [None]
